FAERS Safety Report 6570347-1 (Version None)
Quarter: 2010Q1

REPORT INFORMATION
  Report Type: 
  Country: None (occurrence: None)
  Receive Date: 20100204
  Receipt Date: 20100127
  Transmission Date: 20100710
  Serious: Yes (Other)
  Sender: FDA-Public Use
  Company Number: US-JNJFOC-20100200528

PATIENT
  Sex: Female
  Weight: 65.77 kg

DRUGS (9)
  1. DURAGESIC-100 [Suspect]
     Indication: PAIN
     Route: 062
  2. DURAGESIC-100 [Suspect]
     Route: 062
  3. DILANTIN [Concomitant]
     Indication: CONVULSION
     Route: 048
  4. DILANTIN [Concomitant]
     Route: 048
  5. HYDROXYZINE [Concomitant]
     Indication: GASTRIC DISORDER
     Route: 048
  6. PRIMIDONE [Concomitant]
     Indication: CONVULSION
     Route: 048
  7. GABAPENTIN [Concomitant]
     Indication: GASTRIC DISORDER
     Route: 048
  8. OMEPRAZOLE [Concomitant]
     Indication: GASTRIC DISORDER
     Route: 048
  9. LEVOTHYROXINE SODIUM [Concomitant]
     Indication: THYROID DISORDER
     Route: 048

REACTIONS (9)
  - APPLICATION SITE PRURITUS [None]
  - APPLICATION SITE ULCER [None]
  - ARTHRITIS [None]
  - ATTENTION DEFICIT/HYPERACTIVITY DISORDER [None]
  - DEPRESSION [None]
  - OESOPHAGEAL DISORDER [None]
  - PRODUCT QUALITY ISSUE [None]
  - VITAMIN D DEFICIENCY [None]
  - WEIGHT INCREASED [None]
